FAERS Safety Report 6201913-0 (Version None)
Quarter: 2009Q2

REPORT INFORMATION
  Report Type: 
  Country: None (occurrence: None)
  Receive Date: 20090526
  Receipt Date: 20090518
  Transmission Date: 20091009
  Serious: Yes (Other)
  Sender: FDA-Public Use
  Company Number: GXKR2008GB07225

PATIENT
  Age: 59 Year
  Sex: Female

DRUGS (11)
  1. CEFUROXIME (NGX) [Suspect]
     Indication: CATARACT OPERATION
     Dosage: 125 MG, UNK
     Dates: start: 20080429, end: 20080429
  2. VOLTAREN [Suspect]
     Dosage: UNK
     Route: 047
     Dates: start: 20080429, end: 20080429
  3. ADRENALINE [Suspect]
     Indication: CATARACT OPERATION
     Dosage: UNK
     Dates: start: 20080429, end: 20080429
  4. HEALON [Suspect]
     Indication: CATARACT OPERATION
     Dosage: UNK
     Dates: start: 20080429, end: 20080429
  5. MINIMS PHENYLEPHRINE [Suspect]
     Indication: MYDRIASIS
     Dosage: UNK
     Route: 047
     Dates: start: 20080429, end: 20080429
  6. MINIMS CYCLOPENTOLAT HYDROCHLORID [Suspect]
     Indication: CYCLOPLEGIA
     Dosage: UNK
     Route: 047
     Dates: start: 20080429, end: 20080429
  7. CO-DYDRAMOL [Concomitant]
     Dosage: UNK
     Route: 048
  8. FLUOXETINE HCL [Concomitant]
     Dosage: UNK
     Route: 048
  9. MAXITROL [Concomitant]
     Dosage: UNK
     Route: 047
     Dates: start: 20080429
  10. POVIDONE IODINE [Concomitant]
     Route: 061
  11. WATER FOR INJECTION [Concomitant]
     Indication: MEDICATION DILUTION
     Dosage: UNK
     Route: 065
     Dates: start: 20080429, end: 20080429

REACTIONS (2)
  - BLINDNESS [None]
  - CORNEAL ABRASION [None]
